FAERS Safety Report 9192013 (Version 1)
Quarter: 2013Q1

REPORT INFORMATION
  Report Type: Spontaneous
  Country: ES (occurrence: None)
  Receive Date: 20130325
  Receipt Date: 20130325
  Transmission Date: 20140127
  Serious: Yes (Other)
  Sender: FDA-Public Use
  Company Number: 2013S1000795

PATIENT
  Age: 66 Year
  Sex: Female

DRUGS (1)
  1. ALIPZA [Suspect]
     Indication: HYPERCHOLESTEROLAEMIA
     Route: 048
     Dates: start: 20130309, end: 20130309

REACTIONS (3)
  - Myalgia [None]
  - Gait disturbance [None]
  - Dyspnoea [None]
